FAERS Safety Report 12920545 (Version 1)
Quarter: 2016Q4

REPORT INFORMATION
  Report Type: Report from Study
  Country: US (occurrence: US)
  Receive Date: 20161108
  Receipt Date: 20161108
  Transmission Date: 20170207
  Serious: Yes (Death)
  Sender: FDA-Public Use
  Company Number: PHEH2016US029049

PATIENT
  Age: 76 Year
  Sex: Female

DRUGS (1)
  1. SANDOSTATIN LAR DEPOT [Suspect]
     Active Substance: OCTREOTIDE ACETATE
     Indication: NEOPLASM MALIGNANT
     Route: 065
     Dates: start: 20151002, end: 20160907

REACTIONS (1)
  - Death [Fatal]

NARRATIVE: CASE EVENT DATE: 20161001
